FAERS Safety Report 8403621-4 (Version None)
Quarter: 2012Q2

REPORT INFORMATION
  Report Type: 
  Country: None (occurrence: None)
  Receive Date: 20120601
  Receipt Date: 20070330
  Transmission Date: 20120825
  Serious: Yes (Hospitalization, Other)
  Sender: FDA-Public Use
  Company Number: JP-BRISTOL-MYERS SQUIBB COMPANY-13724893

PATIENT
  Age: 56 Year
  Sex: Male
  Weight: 59 kg

DRUGS (9)
  1. SEROQUEL [Concomitant]
     Indication: INSOMNIA
     Dosage: 100MG
     Route: 048
     Dates: start: 20061001, end: 20070309
  2. NUTRITIONAL [Concomitant]
     Indication: DECREASED APPETITE
     Route: 048
     Dates: start: 20070124, end: 20070312
  3. TETRAMIDE [Concomitant]
     Indication: INSOMNIA
     Dosage: 60MG 1OCT06-7FEB07, 30MG 8FEB07-12MAR07 TABS
     Route: 048
     Dates: start: 20061001, end: 20070207
  4. ABILIFY [Suspect]
     Dosage: 12MG TAKEN OCT-2006 TO 21-FEB-2007,OCT07 12MG:1OCT06-21FEB07 6MG:22-28FEB07
     Route: 048
     Dates: start: 20061001, end: 20070301
  5. ANAFRANIL [Concomitant]
     Indication: DEPRESSION
     Dosage: 25MG TABLET
     Route: 048
     Dates: start: 20070215, end: 20070312
  6. LUVOX [Concomitant]
     Indication: DEPRESSION
     Dosage: 150MG 25JAN07-14FEB07, 50MG 15FEB07-21FEB07 TABS
     Route: 048
     Dates: start: 20070125, end: 20070221
  7. ENSURE [Concomitant]
     Dosage: LIQUID
     Dates: start: 20070124, end: 20070312
  8. LEXOTAN [Concomitant]
     Indication: ANXIETY
     Dosage: TABLET
     Route: 048
     Dates: start: 20070201, end: 20070312
  9. NUTRITIONAL [Concomitant]
     Indication: NUTRITIONAL SUPPORT
     Route: 048
     Dates: start: 20070124, end: 20070312

REACTIONS (4)
  - HAEMATURIA [None]
  - NEUROLEPTIC MALIGNANT SYNDROME [None]
  - PNEUMONIA ASPIRATION [None]
  - AKINESIA [None]
